FAERS Safety Report 24435171 (Version 1)
Quarter: 2024Q4

REPORT INFORMATION
  Report Type: Spontaneous
  Country: DE (occurrence: DE)
  Receive Date: 20241015
  Receipt Date: 20241015
  Transmission Date: 20250114
  Serious: Yes (Death, Hospitalization, Other)
  Sender: STRIDES
  Company Number: None

PATIENT
  Age: 57 Year
  Sex: Male

DRUGS (15)
  1. PREDNISOLONE [Suspect]
     Active Substance: PREDNISOLONE
     Indication: Pachymeningitis
     Dosage: 2 MILLIGRAM, QD
     Route: 048
     Dates: start: 2014
  2. PREDNISOLONE [Suspect]
     Active Substance: PREDNISOLONE
     Dosage: 20 MILLIGRAM, QD, DOSE TITRATED UP
     Route: 048
     Dates: start: 2014
  3. METHOTREXATE [Suspect]
     Active Substance: METHOTREXATE
     Indication: Pachymeningitis
     Dosage: 15 MILLIGRAM (INSTILLED FOUR TIMES OVER THE PERIOD OF 2 WEEKS)
     Dates: start: 202009
  4. METHOTREXATE [Suspect]
     Active Substance: METHOTREXATE
     Dosage: UNK, ONCE A WEEK (RECEIVED UP TO 20MG  )
     Route: 048
  5. MYCOPHENOLATE MOFETIL [Suspect]
     Active Substance: MYCOPHENOLATE MOFETIL
     Indication: Pachymeningitis
     Dosage: 200 MILLIGRAM, QD
     Route: 065
  6. MYCOPHENOLATE MOFETIL [Suspect]
     Active Substance: MYCOPHENOLATE MOFETIL
     Dosage: 3 GRAM, RECEIVED PULSE THERAPY TWO TIMES
     Route: 042
  7. METHYLPREDNISOLONE [Suspect]
     Active Substance: METHYLPREDNISOLONE
     Indication: Pachymeningitis
     Dosage: 3 GRAM, BID
     Route: 042
  8. DEXAMETHASONE [Suspect]
     Active Substance: DEXAMETHASONE
     Indication: Pachymeningitis
     Dosage: 16 MILLIGRAM, 4 TIMES OVER 2 WEEKS
     Dates: start: 202009, end: 2020
  9. TRIAMCINOLONE [Suspect]
     Active Substance: TRIAMCINOLONE
     Indication: Pachymeningitis
     Dosage: 40 MILLIGRAM, EVERY 8 HRS (RECEIVED THREE TIMES A DAY)
     Route: 037
  10. INFLIXIMAB [Suspect]
     Active Substance: INFLIXIMAB
     Indication: Pachymeningitis
     Dosage: 375 MILLIGRAM, EVERY 3 HRS (RECEIVED EIGHT TIMES  )
     Route: 042
  11. RITUXIMAB [Suspect]
     Active Substance: RITUXIMAB
     Indication: Pachymeningitis
     Dosage: 25 MILLIGRAM
     Route: 037
  12. RITUXIMAB [Suspect]
     Active Substance: RITUXIMAB
     Dosage: 1000 MILLIGRAM, EVERY 12 HRS
     Route: 042
  13. RITUXIMAB [Suspect]
     Active Substance: RITUXIMAB
     Dosage: 2000 MILLIGRAM, BID
     Route: 042
  14. RITUXIMAB [Suspect]
     Active Substance: RITUXIMAB
     Dosage: UNK (CONCOMITANT THERAPY)
     Route: 065
  15. CYTARABINE [Concomitant]
     Active Substance: CYTARABINE
     Indication: Pachymeningitis
     Dosage: 40 MILLIGRAM. (INSTILLED FOUR TIMES OVER THE PERIOD OF 2 WEEKS)
     Dates: start: 202009

REACTIONS (4)
  - Condition aggravated [Fatal]
  - Drug ineffective [Fatal]
  - Substance-induced psychotic disorder [Recovered/Resolved]
  - Off label use [Unknown]

NARRATIVE: CASE EVENT DATE: 20200101
